FAERS Safety Report 7574757-5 (Version None)
Quarter: 2011Q2

REPORT INFORMATION
  Report Type: 
  Country: None (occurrence: None)
  Receive Date: 20110627
  Receipt Date: 20110609
  Transmission Date: 20111010
  Serious: Yes (Hospitalization)
  Sender: FDA-Public Use
  Company Number: CH-BAYER-2011-049522

PATIENT
  Age: 59 Year
  Sex: Female
  Weight: 50 kg

DRUGS (10)
  1. TIZANIDINE HCL [Interacting]
     Dosage: 1 MG, QD
     Route: 048
  2. CALCIUM CARBONATE [Concomitant]
     Dosage: 2000 MG, QD
     Route: 048
  3. PANTOPRAZOLE [Concomitant]
     Dosage: 20 MG, QD
     Route: 048
  4. CIPROFLOXACIN [Interacting]
     Indication: ABDOMINAL PAIN
     Dosage: UNK
     Route: 048
     Dates: start: 20110421, end: 20110425
  5. MAGNESIOCARD [Concomitant]
     Dosage: 1 DF, TID
     Route: 048
  6. VALIUM [Suspect]
     Indication: CONVULSION
     Dosage: 0.5 MG, PRN
     Route: 048
  7. LYRICA [Concomitant]
     Dosage: 150 MG, TID
     Route: 048
  8. TIZANIDINE HCL [Interacting]
     Dosage: DAILY DOSE 3 MG
  9. CIPROFLOXACIN [Interacting]
     Indication: PELVIC PAIN
  10. TRANSIPEG [MACROGOL 3350,KCL,NA BICARB,NACL,NA+ SULF ANHYDR] [Concomitant]
     Dosage: 2 DF, QD
     Route: 048

REACTIONS (2)
  - SEDATION [None]
  - COMA [None]
